FAERS Safety Report 18451673 (Version 2)
Quarter: 2020Q4

REPORT INFORMATION
  Report Type: Spontaneous
  Country: JP (occurrence: JP)
  Receive Date: 20201102
  Receipt Date: 20201120
  Transmission Date: 20210114
  Serious: No
  Sender: FDA-Public Use
  Company Number: JP-GLAXOSMITHKLINE-JP2020203463

PATIENT
  Age: 88 Year
  Sex: Male

DRUGS (9)
  1. WARFARIN (JAPANESE TRADENAME) [Concomitant]
     Active Substance: WARFARIN POTASSIUM
     Dosage: 3 DF, QD
  2. BICALUTAMIDE. [Concomitant]
     Active Substance: BICALUTAMIDE
     Dosage: 80 MG, QD
  3. TAMSULOSIN HYDROCHLORIDE OD [Concomitant]
     Active Substance: TAMSULOSIN HYDROCHLORIDE
     Dosage: 0.2 MG, QD
  4. BETANIS TABLETS [Concomitant]
     Dosage: 50 MG, QD
  5. BILANOA TABLET [Concomitant]
     Dosage: 1 DF, QD
  6. TRELEGY ELLIPTA [Suspect]
     Active Substance: FLUTICASONE FUROATE\UMECLIDINIUM BROMIDE\VILANTEROL TRIFENATATE
     Dosage: 100 ?G, QD
     Route: 055
  7. BISOPROLOL FUMARATE TABLET [Concomitant]
     Dosage: 0.625 MG, QD
  8. LANSOPRAZOLE-OD TABLETS [Concomitant]
     Dosage: 15 MG, QD
  9. FEBURIC TABLETS [Concomitant]
     Active Substance: FEBUXOSTAT
     Dosage: 10 MG, QD

REACTIONS (2)
  - Product complaint [Unknown]
  - Dyspnoea [Recovered/Resolved]

NARRATIVE: CASE EVENT DATE: 202010
